FAERS Safety Report 5806861-3 (Version None)
Quarter: 2008Q3

REPORT INFORMATION
  Report Type: 
  Country: None (occurrence: None)
  Receive Date: 20080711
  Receipt Date: 20080701
  Transmission Date: 20090109
  Serious: Yes (Death, Other)
  Sender: FDA-Public Use
  Company Number: US-JNJFOC-20080606029

PATIENT
  Sex: Female
  Weight: 63.05 kg

DRUGS (1)
  1. REMICADE [Suspect]
     Indication: CROHN'S DISEASE
     Dosage: NO MORE THAN 5 DOSES
     Route: 042

REACTIONS (1)
  - CARCINOID TUMOUR OF THE SMALL BOWEL [None]
